FAERS Safety Report 5267443-8 (Version None)
Quarter: 2007Q1

REPORT INFORMATION
  Report Type: 
  Country: None (occurrence: None)
  Receive Date: 20070312
  Receipt Date: 20070307
  Transmission Date: 20070707
  Serious: Yes (Other)
  Sender: FDA-Public Use
  Company Number: 009306

PATIENT
  Age: 23 Year
  Sex: Female
  Weight: 86.2 kg

DRUGS (1)
  1. CLARAVIS [Suspect]
     Dosage: 40 MG, BID; ORAL
     Route: 048
     Dates: start: 20061103, end: 20061127

REACTIONS (6)
  - ABORTION SPONTANEOUS [None]
  - DRUG EXPOSURE DURING PREGNANCY [None]
  - DRUG INEFFECTIVE [None]
  - FOETAL HEART RATE ABNORMAL [None]
  - PREGNANCY ON ORAL CONTRACEPTIVE [None]
  - UNEVALUABLE EVENT [None]
